FAERS Safety Report 20815401 (Version 1)
Quarter: 2022Q2

REPORT INFORMATION
  Report Type: Spontaneous
  Country: FR (occurrence: None)
  Receive Date: 20220511
  Receipt Date: 20220511
  Transmission Date: 20220721
  Serious: Yes (Death, Hospitalization, Other)
  Sender: FDA-Public Use
  Company Number: 2022A181754

PATIENT
  Age: 61 Year
  Sex: Female

DRUGS (1)
  1. DAPAGLIFLOZIN [Suspect]
     Active Substance: DAPAGLIFLOZIN
     Indication: Type 2 diabetes mellitus
     Dosage: UNKNOWN
     Route: 048

REACTIONS (4)
  - Myocardial infarction [Fatal]
  - Cardiogenic shock [Fatal]
  - Coma [Fatal]
  - Ill-defined disorder [Fatal]

NARRATIVE: CASE EVENT DATE: 20220401
